FAERS Safety Report 16893417 (Version 1)
Quarter: 2019Q4

REPORT INFORMATION
  Report Type: Spontaneous
  Country: JP (occurrence: JP)
  Receive Date: 20191008
  Receipt Date: 20191008
  Transmission Date: 20200122
  Serious: Yes (Other)
  Sender: FDA-Public Use
  Company Number: JP-GLAXOSMITHKLINE-JP2019JPN166324

PATIENT
  Age: 76 Year
  Sex: Male

DRUGS (3)
  1. TRELEGY ELLIPTA [Suspect]
     Active Substance: FLUTICASONE FUROATE\UMECLIDINIUM BROMIDE\VILANTEROL TRIFENATATE
     Dosage: 100 ?G, UNK
     Route: 055
     Dates: start: 20190625
  2. ANORO ELLIPTA [Suspect]
     Active Substance: UMECLIDINIUM BROMIDE\VILANTEROL TRIFENATATE
     Indication: ASTHMA
     Dosage: UNK
     Route: 055
     Dates: start: 20190912
  3. ENCRUSE [Concomitant]
     Active Substance: UMECLIDINIUM BROMIDE
     Dosage: UNK
     Dates: start: 20190614

REACTIONS (3)
  - Nasopharyngitis [Recovered/Resolved]
  - Product use in unapproved indication [Unknown]
  - Oesophageal candidiasis [Recovered/Resolved]

NARRATIVE: CASE EVENT DATE: 20190805
